FAERS Safety Report 20046713 (Version 1)
Quarter: 2021Q4

REPORT INFORMATION
  Report Type: Report from Study
  Country: EG (occurrence: EG)
  Receive Date: 20211109
  Receipt Date: 20211109
  Transmission Date: 20220303
  Serious: Yes (Other)
  Sender: FDA-Public Use
  Company Number: EG-NOVARTISPH-NVSC2021EG252952

PATIENT
  Age: 25 Year
  Sex: Female

DRUGS (5)
  1. GILENYA [Suspect]
     Active Substance: FINGOLIMOD HYDROCHLORIDE
     Indication: Multiple sclerosis
     Dosage: 1 DF, QD
     Route: 048
     Dates: start: 2018, end: 2019
  2. OMEGA 3 [Concomitant]
     Active Substance: CAPSAICIN
     Indication: Supplementation therapy
     Dosage: UNK UNK, QD
     Route: 048
     Dates: start: 2015
  3. ALFACALCIDOL [Concomitant]
     Active Substance: ALFACALCIDOL
     Indication: Supplementation therapy
     Dosage: UNK UNK, QD
     Route: 048
     Dates: start: 2015
  4. REBIF [Concomitant]
     Active Substance: INTERFERON BETA-1A
     Indication: Multiple sclerosis
     Dosage: UNK
     Route: 058
     Dates: start: 2015, end: 2018
  5. REBIF [Concomitant]
     Active Substance: INTERFERON BETA-1A
     Dosage: UNK
     Route: 058
     Dates: start: 2019

REACTIONS (5)
  - Hypoaesthesia [Recovered/Resolved]
  - Limb discomfort [Recovered/Resolved]
  - Urinary incontinence [Not Recovered/Not Resolved]
  - Burning sensation [Not Recovered/Not Resolved]
  - Multiple sclerosis relapse [Recovered/Resolved]

NARRATIVE: CASE EVENT DATE: 20211024
